FAERS Safety Report 17407183 (Version 1)
Quarter: 2020Q1

REPORT INFORMATION
  Report Type: Spontaneous
  Country: US (occurrence: US)
  Receive Date: 20200211
  Receipt Date: 20200211
  Transmission Date: 20200409
  Serious: Yes (Disabling, Other)
  Sender: FDA-Public Use
  Company Number: None

PATIENT
  Age: 34 Year
  Sex: Male
  Weight: 69.75 kg

DRUGS (3)
  1. FECAL TRANSPLANT [Suspect]
     Active Substance: FECAL MICROBIOTA
     Indication: PROBIOTIC THERAPY
  2. HIZENTRA [Concomitant]
     Active Substance: HUMAN IMMUNOGLOBULIN G
  3. MULTIVITAMIN [Concomitant]
     Active Substance: VITAMINS

REACTIONS (3)
  - Infection [None]
  - Post procedural complication [None]
  - Clostridium difficile infection [None]

NARRATIVE: CASE EVENT DATE: 20150601
